FAERS Safety Report 9125821 (Version 1)
Quarter: 2013Q1

REPORT INFORMATION
  Report Type: Spontaneous
  Country: US (occurrence: US)
  Receive Date: 20130228
  Receipt Date: 20130228
  Transmission Date: 20140127
  Serious: Yes (Hospitalization, Other)
  Sender: FDA-Public Use
  Company Number: US-AMGEN-USASP2013012177

PATIENT
  Age: 82 Year
  Sex: Female
  Weight: 47.17 kg

DRUGS (10)
  1. ENBREL [Suspect]
     Indication: PRODUCT USED FOR UNKNOWN INDICATION
     Dosage: 50 MG, QWK
     Route: 058
  2. LIPITOR [Concomitant]
     Dosage: 10 MG, UNK
  3. OMEPRAZOLE [Concomitant]
     Dosage: 10 MG, UNK
  4. LASIX                              /00032601/ [Concomitant]
     Dosage: 20 MG, UNK
  5. EXELON                             /01383201/ [Concomitant]
     Dosage: 4.6 MG/24
  6. PLAQUENIL                          /00072602/ [Concomitant]
     Dosage: 200 MG, UNK
  7. SYMBICORT [Concomitant]
     Dosage: AER 80-4.5
  8. ALBUTEROL                          /00139501/ [Concomitant]
     Dosage: AER 90MCG
  9. METOPROLOL [Concomitant]
     Dosage: 25 MG,ER
  10. CALCIUM 500+D [Concomitant]
     Dosage: 500 UNK, UNK

REACTIONS (3)
  - Upper respiratory tract infection [Unknown]
  - Cardiac failure congestive [Unknown]
  - Myocardial infarction [Unknown]
